FAERS Safety Report 7811112-4 (Version None)
Quarter: 2011Q4

REPORT INFORMATION
  Report Type: 
  Country: None (occurrence: None)
  Receive Date: 20111013
  Receipt Date: 20111007
  Transmission Date: 20120403
  Serious: Yes (Death)
  Sender: FDA-Public Use
  Company Number: US-CELGENEUS-163-21880-11063762

PATIENT
  Sex: Male
  Weight: 68.554 kg

DRUGS (11)
  1. ZOMETA [Concomitant]
     Dosage: 3 MILLIGRAM
     Route: 041
     Dates: start: 20110603, end: 20110708
  2. ALLOPURINOL [Concomitant]
     Route: 065
  3. DEXAMETHASONE [Concomitant]
     Route: 065
  4. LISINOPRIL [Concomitant]
     Route: 065
  5. PERCOCET [Concomitant]
     Route: 065
  6. REVLIMID [Suspect]
     Indication: MULTIPLE MYELOMA
     Dosage: 10 MILLIGRAM
     Route: 048
     Dates: start: 20110527, end: 20110821
  7. OXYCODONE HCL [Concomitant]
     Route: 065
  8. VELCADE [Concomitant]
     Indication: MULTIPLE MYELOMA
     Dosage: 1.8 MILLIGRAM
     Route: 041
     Dates: start: 20110701, end: 20110708
  9. DURAGESIC-100 [Concomitant]
     Route: 065
  10. PREVACID [Concomitant]
     Route: 065
  11. METOPROLOL TARTRATE [Concomitant]
     Route: 065

REACTIONS (4)
  - MULTIPLE MYELOMA [None]
  - PAIN [None]
  - DEHYDRATION [None]
  - DECREASED APPETITE [None]
